FAERS Safety Report 8956059 (Version 1)
Quarter: 2012Q4

REPORT INFORMATION
  Report Type: 
  Country: US (occurrence: US)
  Receive Date: 20121210
  Receipt Date: 20121210
  Transmission Date: 20130627
  Serious: No
  Sender: FDA-Public Use
  Company Number: US-B.I. PHARMACEUTICALS,INC./RIDGEFIELD-2012-BI-02106BP

PATIENT
  Sex: Male

DRUGS (1)
  1. PRADAXA [Suspect]
     Indication: CEREBROVASCULAR ACCIDENT PROPHYLAXIS
     Dosage: 300 mg
     Route: 048
     Dates: start: 20121001, end: 20121127

REACTIONS (3)
  - Eructation [Recovered/Resolved]
  - Oesophageal pain [Not Recovered/Not Resolved]
  - Gastrooesophageal reflux disease [Recovered/Resolved]
